FAERS Safety Report 22050390 (Version 1)
Quarter: 2023Q1

REPORT INFORMATION
  Report Type: Spontaneous
  Country: BE (occurrence: BE)
  Receive Date: 20230301
  Receipt Date: 20230301
  Transmission Date: 20230417
  Serious: Yes (Other)
  Sender: FDA-Public Use
  Company Number: BE-TEVA-2023-BE-2860674

PATIENT
  Age: 79 Year
  Sex: Male

DRUGS (6)
  1. PACLITAXEL [Suspect]
     Active Substance: PACLITAXEL
     Indication: Breast cancer
     Route: 065
  2. ADO-TRASTUZUMAB EMTANSINE [Suspect]
     Active Substance: ADO-TRASTUZUMAB EMTANSINE
     Indication: Breast cancer
     Dosage: EVERY 3 WEEKS FOR 1 YEAR
     Route: 065
  3. VALACYCLOVIR HYDROCHLORIDE [Concomitant]
     Active Substance: VALACYCLOVIR HYDROCHLORIDE
     Indication: Antiviral treatment
     Route: 065
  4. DOXYCYCLINE [Concomitant]
     Active Substance: DOXYCYCLINE
     Indication: Antibiotic therapy
     Route: 065
  5. OFLOXACIN [Concomitant]
     Active Substance: OFLOXACIN
     Indication: Antibiotic therapy
     Route: 061
  6. GANCICLOVIR [Concomitant]
     Active Substance: GANCICLOVIR
     Indication: Antiviral treatment
     Dosage: 3 TIMES DAILY TOPICAL
     Route: 047

REACTIONS (2)
  - Corneal disorder [Recovering/Resolving]
  - Corneal disorder [Recovered/Resolved]
